FAERS Safety Report 16726781 (Version 1)
Quarter: 2019Q3

REPORT INFORMATION
  Report Type: Spontaneous
  Country: US (occurrence: US)
  Receive Date: 20190821
  Receipt Date: 20190821
  Transmission Date: 20191005
  Serious: Yes (Hospitalization, Other)
  Sender: FDA-Public Use
  Company Number: US-SEATTLE GENETICS-2019SGN02846

PATIENT
  Age: 40 Year
  Sex: Male
  Weight: 132 kg

DRUGS (2)
  1. NIVOLUMAB [Suspect]
     Active Substance: NIVOLUMAB
     Indication: HODGKIN^S DISEASE
     Dosage: 3 MG/KG, QCYCLE
     Route: 042
     Dates: start: 20190122, end: 20190305
  2. ADCETRIS [Suspect]
     Active Substance: BRENTUXIMAB VEDOTIN
     Indication: HODGKIN^S DISEASE
     Dosage: 1.8 MG/KG, QCYCLE
     Route: 042
     Dates: start: 20190122, end: 20190305

REACTIONS (4)
  - Influenza [Unknown]
  - Clostridium difficile colitis [Recovered/Resolved]
  - Colitis [Unknown]
  - Rash [Unknown]

NARRATIVE: CASE EVENT DATE: 20190312
